FAERS Safety Report 8602545-7 (Version None)
Quarter: 2012Q3

REPORT INFORMATION
  Report Type: 
  Country: None (occurrence: None)
  Receive Date: 20120817
  Receipt Date: 20120813
  Transmission Date: 20120928
  Serious: Yes (Other)
  Sender: FDA-Public Use
  Company Number: PHHY2011US06343

PATIENT
  Sex: Female

DRUGS (2)
  1. AMPYRA [Concomitant]
  2. GILENYA [Suspect]
     Indication: MULTIPLE SCLEROSIS
     Dosage: 0.5 MG, DAILY
     Route: 048
     Dates: start: 20110121

REACTIONS (8)
  - OROPHARYNGEAL PAIN [None]
  - CONFUSIONAL STATE [None]
  - GAIT DISTURBANCE [None]
  - SOMNOLENCE [None]
  - DYSPHONIA [None]
  - BLOOD PRESSURE FLUCTUATION [None]
  - HEART RATE INCREASED [None]
  - FUNGAL SKIN INFECTION [None]
